FAERS Safety Report 13141847 (Version 1)
Quarter: 2017Q1

REPORT INFORMATION
  Report Type: Spontaneous
  Country: FR (occurrence: FR)
  Receive Date: 20170123
  Receipt Date: 20170123
  Transmission Date: 20170428
  Serious: Yes (Other)
  Sender: FDA-Public Use
  Company Number: FR-ELI_LILLY_AND_COMPANY-FR201701005143

PATIENT
  Age: 13 Year
  Sex: Male

DRUGS (3)
  1. UMATROPE [Suspect]
     Active Substance: SOMATROPIN
     Dosage: 2.4 MG, QD
     Route: 058
     Dates: start: 201411
  2. UMATROPE [Suspect]
     Active Substance: SOMATROPIN
     Dosage: 2.7 MG, QD
     Route: 058
     Dates: start: 201511
  3. UMATROPE [Suspect]
     Active Substance: SOMATROPIN
     Indication: DYSCHONDROSTEOSIS
     Dosage: UNK, UNKNOWN
     Route: 065
     Dates: start: 2012

REACTIONS (2)
  - Testicular disorder [Unknown]
  - Precocious puberty [Recovered/Resolved]

NARRATIVE: CASE EVENT DATE: 20140301
